FAERS Safety Report 21399369 (Version 1)
Quarter: 2022Q4

REPORT INFORMATION
  Report Type: Spontaneous
  Country: US (occurrence: US)
  Receive Date: 20221001
  Receipt Date: 20221001
  Transmission Date: 20230112
  Serious: No
  Sender: FDA-Public Use
  Company Number: US-JNJFOC-20220950592

PATIENT
  Sex: Male

DRUGS (1)
  1. REMICADE [Suspect]
     Active Substance: INFLIXIMAB
     Indication: Product used for unknown indication
     Dosage: 4X100 MG
     Route: 041

REACTIONS (3)
  - General physical health deterioration [Unknown]
  - Gastrointestinal disorder [Unknown]
  - Product dose omission issue [Unknown]
